FAERS Safety Report 9968502 (Version 1)
Quarter: 2014Q1

REPORT INFORMATION
  Report Type: Report from Study
  Country: US (occurrence: US)
  Receive Date: 20140306
  Receipt Date: 20140306
  Transmission Date: 20141002
  Serious: No
  Sender: FDA-Public Use
  Company Number: US-ABBVIE-13P-163-1143054-00

PATIENT
  Age: 47 Year
  Sex: Male

DRUGS (2)
  1. HUMIRA [Suspect]
     Indication: CROHN^S DISEASE
     Dosage: LOADING DOSE RECEIVED ON 03 SEP 2013
     Dates: start: 20130903
  2. DIFLUCAN [Concomitant]
     Indication: FUNGAL INFECTION

REACTIONS (2)
  - Fatigue [Unknown]
  - Pain [Unknown]
